FAERS Safety Report 5479594-3 (Version None)
Quarter: 2007Q3

REPORT INFORMATION
  Report Type: 
  Country: None (occurrence: None)
  Receive Date: 20070910
  Receipt Date: 20070518
  Transmission Date: 20080115
  Serious: Yes (Hospitalization, Other)
  Sender: FDA-Public Use
  Company Number: 37264

PATIENT
  Age: 67 Year
  Sex: Female

DRUGS (1)
  1. ETOPOSIDE [Suspect]
     Indication: SMALL CELL LUNG CANCER STAGE UNSPECIFIED
     Dosage: 100 MG/M2 INTRAVENOUS ON DA
     Dates: start: 20070307

REACTIONS (3)
  - HYPOXIA [None]
  - NEUTROPENIC SEPSIS [None]
  - RENAL FAILURE [None]
